FAERS Safety Report 7422688-3 (Version None)
Quarter: 2011Q2

REPORT INFORMATION
  Report Type: 
  Country: None (occurrence: None)
  Receive Date: 20110419
  Receipt Date: 20110408
  Transmission Date: 20111010
  Serious: Yes (Life-Threatening, Hospitalization, Other)
  Sender: FDA-Public Use
  Company Number: DE-ELI_LILLY_AND_COMPANY-DE201103004738

PATIENT
  Age: 42 Year
  Sex: Female

DRUGS (4)
  1. BISOPROLOL [Concomitant]
     Dosage: UNK, UNK
  2. RAMIPRIL [Concomitant]
  3. PANTOPRAZOLE [Concomitant]
     Indication: GASTRIC DISORDER
     Dates: start: 20110217
  4. CYMBALTA [Suspect]
     Indication: DEPRESSION
     Dosage: 90 MG, UNK

REACTIONS (7)
  - MITRAL VALVE INCOMPETENCE [None]
  - TRICUSPID VALVE INCOMPETENCE [None]
  - ACUTE HEPATIC FAILURE [None]
  - PULMONARY HYPERTENSION [None]
  - DISSEMINATED INTRAVASCULAR COAGULATION [None]
  - CONGESTIVE CARDIOMYOPATHY [None]
  - CHOLECYSTITIS ACUTE [None]
